FAERS Safety Report 7221359-6 (Version None)
Quarter: 2010Q4

REPORT INFORMATION
  Report Type: 
  Country: None (occurrence: None)
  Receive Date: 20101223
  Receipt Date: 20101216
  Transmission Date: 20110411
  Serious: Yes (Hospitalization, Other)
  Sender: FDA-Public Use
  Company Number: 2010027100

PATIENT
  Sex: Female

DRUGS (12)
  1. PRIVIGEN [Suspect]
     Indication: IMMUNODEFICIENCY
     Dosage: 10 G, QD, OVER 4-5 HOURS INTRAVENOUS (NOT OTHERWISE SPECIFIED)
     Route: 042
     Dates: start: 20101105, end: 20101105
  2. COREG [Concomitant]
  3. SYNTHROID [Concomitant]
  4. HYDROCORTONE [Concomitant]
  5. AMBIEN [Concomitant]
  6. MESTINON [Concomitant]
  7. CLONAZEPAM [Concomitant]
  8. DIAZEPAM [Concomitant]
  9. VITAMIN D [Concomitant]
  10. MG OX (MAGNESIUM OXIDE) [Concomitant]
  11. FENTANYL [Concomitant]
  12. REMERON [Concomitant]

REACTIONS (6)
  - BLOOD CULTURE POSITIVE [None]
  - CHILLS [None]
  - ENTEROBACTER TEST POSITIVE [None]
  - ESCHERICHIA TEST POSITIVE [None]
  - HYPOTENSION [None]
  - INFUSION RELATED REACTION [None]
